FAERS Safety Report 19826283 (Version 1)
Quarter: 2021Q3

REPORT INFORMATION
  Report Type: Spontaneous
  Country: US (occurrence: US)
  Receive Date: 20210914
  Receipt Date: 20210914
  Transmission Date: 20211014
  Serious: Yes (Hospitalization)
  Sender: FDA-Public Use
  Company Number: None

PATIENT
  Age: 62 Year
  Sex: Female

DRUGS (4)
  1. DULOXETINE CAP 60MG [Concomitant]
     Dates: start: 20210817
  2. FLUOCIN ACET OIL 0.01% SC [Concomitant]
     Dates: start: 20210720
  3. DULOXETINE CAP 30MG [Concomitant]
     Dates: start: 20210817
  4. TALTZ [Suspect]
     Active Substance: IXEKIZUMAB
     Indication: PSORIASIS
     Route: 048
     Dates: start: 20201110

REACTIONS (3)
  - Surgery [None]
  - Renal disorder [None]
  - Therapy interrupted [None]

NARRATIVE: CASE EVENT DATE: 20210413
